FAERS Safety Report 15104319 (Version 2)
Quarter: 2018Q4

REPORT INFORMATION
  Report Type: Spontaneous
  Country: US (occurrence: US)
  Receive Date: 20180703
  Receipt Date: 20181108
  Transmission Date: 20190204
  Serious: No
  Sender: FDA-Public Use
  Company Number: US-VIFOR (INTERNATIONAL) INC.-VIT-2018-06412

PATIENT
  Sex: Female

DRUGS (5)
  1. VELTASSA [Suspect]
     Active Substance: PATIROMER
     Indication: HYPERKALAEMIA
     Route: 048
     Dates: start: 201806, end: 2018
  2. ELIQUIS [Concomitant]
     Active Substance: APIXABAN
  3. CLONAZEPAM. [Concomitant]
     Active Substance: CLONAZEPAM
  4. CARVEDILOL. [Concomitant]
     Active Substance: CARVEDILOL
  5. ISOSORBIDE DINITRATE. [Concomitant]
     Active Substance: ISOSORBIDE DINITRATE

REACTIONS (2)
  - Blood magnesium increased [Unknown]
  - Skin disorder [Unknown]

NARRATIVE: CASE EVENT DATE: 2018
